FAERS Safety Report 9495286 (Version 2)
Quarter: 2013Q4

REPORT INFORMATION
  Report Type: Spontaneous
  Country: DE (occurrence: DE)
  Receive Date: 20130903
  Receipt Date: 20131202
  Transmission Date: 20140711
  Serious: Yes (Hospitalization)
  Sender: FDA-Public Use
  Company Number: DE-B.I. PHARMACEUTICALS,INC./RIDGEFIELD-2013-BI-26831DE

PATIENT
  Age: 8 Decade
  Sex: Male

DRUGS (3)
  1. XARELTO [Suspect]
  2. MARCUMAR [Concomitant]
  3. COMBI [Concomitant]

REACTIONS (1)
  - Device occlusion [Unknown]
